FAERS Safety Report 23109095 (Version 1)
Quarter: 2023Q4

REPORT INFORMATION
  Report Type: Spontaneous
  Country: US (occurrence: None)
  Receive Date: 20231024
  Receipt Date: 20231024
  Transmission Date: 20240110
  Serious: Yes (Hospitalization)
  Sender: FDA-Public Use
  Company Number: None

PATIENT
  Age: 63 Year
  Sex: Female
  Weight: 52.1 kg

DRUGS (1)
  1. BUPRENORPHINE [Suspect]
     Active Substance: BUPRENORPHINE
     Dates: start: 20230201, end: 20230203

REACTIONS (6)
  - Myalgia [None]
  - Chest pain [None]
  - Sedation [None]
  - Peripheral swelling [None]
  - Fatigue [None]
  - Chronic idiopathic pain syndrome [None]

NARRATIVE: CASE EVENT DATE: 20230203
